FAERS Safety Report 7625941-3 (Version None)
Quarter: 2011Q3

REPORT INFORMATION
  Report Type: 
  Country: None (occurrence: None)
  Receive Date: 20110721
  Receipt Date: 20110721
  Transmission Date: 20111222
  Serious: Yes (Hospitalization)
  Sender: FDA-Public Use
  Company Number: None

PATIENT
  Sex: Female
  Weight: 80 kg

DRUGS (2)
  1. TRILIPIX [Concomitant]
     Dosage: 135MG
     Route: 048
     Dates: start: 20080601, end: 20110719
  2. CRESTOR [Suspect]
     Indication: CORONARY ARTERY DISEASE
     Dosage: 40MG
     Route: 048
     Dates: start: 20080601, end: 20110719

REACTIONS (1)
  - RHABDOMYOLYSIS [None]
